FAERS Safety Report 6932103-1 (Version None)
Quarter: 2010Q3

REPORT INFORMATION
  Report Type: 
  Country: None (occurrence: None)
  Receive Date: 20100819
  Receipt Date: 20100806
  Transmission Date: 20110219
  Serious: Yes (Death)
  Sender: FDA-Public Use
  Company Number: A0862813A

PATIENT
  Age: 54 Year
  Sex: Male
  Weight: 105 kg

DRUGS (5)
  1. AVANDIA [Suspect]
     Dosage: 8MG PER DAY
     Route: 048
  2. GLUCOPHAGE [Concomitant]
  3. GLYBURIDE [Concomitant]
  4. LISINOPRIL [Concomitant]
  5. CLONIDINE [Concomitant]

REACTIONS (1)
  - ACUTE MYOCARDIAL INFARCTION [None]
